FAERS Safety Report 20192524 (Version 2)
Quarter: 2022Q3

REPORT INFORMATION
  Report Type: Report from Study
  Country: US (occurrence: None)
  Receive Date: 20211216
  Receipt Date: 20220708
  Transmission Date: 20221026
  Serious: Yes (Other)
  Sender: FDA-Public Use
  Company Number: US-ROCHE-2791427

PATIENT
  Age: 55 Year
  Sex: Male
  Weight: 99.6 kg

DRUGS (11)
  1. OBINUTUZUMAB [Suspect]
     Active Substance: OBINUTUZUMAB
     Indication: Chronic lymphocytic leukaemia
     Dosage: ON DAY 1, CYCLE 1?ON 06/JAN/2021, HE RECEIVED LAST DOSE OF OBINUTUZUMAB.?ON 30/MAR/2021, HE RECEIVED
     Route: 042
     Dates: start: 20210105
  2. OBINUTUZUMAB [Suspect]
     Active Substance: OBINUTUZUMAB
     Dosage: ON DAY 2, CYCLE 1
     Route: 042
  3. OBINUTUZUMAB [Suspect]
     Active Substance: OBINUTUZUMAB
     Dosage: ON DAY 8, CYCLE 1
     Route: 042
  4. OBINUTUZUMAB [Suspect]
     Active Substance: OBINUTUZUMAB
     Dosage: ON DAY 15, CYCLE 1
     Route: 042
  5. OBINUTUZUMAB [Suspect]
     Active Substance: OBINUTUZUMAB
     Dosage: ON DAY 1, CYCLE 2-6
     Route: 042
  6. VENETOCLAX [Suspect]
     Active Substance: VENETOCLAX
     Indication: Chronic lymphocytic leukaemia
     Dosage: QD DAYS 1-7 CYCLE 3?ON 05/APR/2021, HE RECEIVED HIS LAST DOSE OF VENETOCLAX 13390 MG.?ON 16/AUG/2021
     Route: 048
     Dates: start: 20210105
  7. VENETOCLAX [Suspect]
     Active Substance: VENETOCLAX
     Dosage: QD DAYS 8-14, CYCLE 3
     Route: 048
  8. VENETOCLAX [Suspect]
     Active Substance: VENETOCLAX
     Dosage: QD DAYS 15-21, CYCLE 3
     Route: 048
  9. VENETOCLAX [Suspect]
     Active Substance: VENETOCLAX
     Dosage: QD DAYS 22-28, CYCLE 3
     Route: 048
  10. VENETOCLAX [Suspect]
     Active Substance: VENETOCLAX
     Dosage: QD DAYS 1-28, CYCLES 4-14
     Route: 048
  11. IBRUTINIB [Suspect]
     Active Substance: IBRUTINIB
     Indication: Chronic lymphocytic leukaemia
     Dosage: QD ON DAYS 1-28, CYCLES 1-19?ON 06/JAN/2021, HE RECEIVED LAST DOSE OF IBRUTINIB.?ON 05/APR/2021, HE
     Route: 048
     Dates: start: 20210105

REACTIONS (10)
  - Neutrophil count decreased [Recovered/Resolved]
  - Tumour lysis syndrome [Recovered/Resolved]
  - Hypocalcaemia [Recovered/Resolved]
  - Neutrophil count decreased [Recovered/Resolved]
  - White blood cell count decreased [Recovered/Resolved]
  - Lymphocyte count decreased [Recovered/Resolved]
  - Anaemia [Recovered/Resolved]
  - Leukocytosis [Recovered/Resolved]
  - Lymphocyte count increased [Unknown]
  - Platelet count decreased [Recovered/Resolved]

NARRATIVE: CASE EVENT DATE: 20210105
